FAERS Safety Report 25314770 (Version 2)
Quarter: 2025Q2

REPORT INFORMATION
  Report Type: Spontaneous
  Country: US (occurrence: US)
  Receive Date: 20250514
  Receipt Date: 20250523
  Transmission Date: 20250716
  Serious: Yes (Hospitalization)
  Sender: TEVA
  Company Number: US-TEVA-VS-3329569

PATIENT
  Age: 60 Year
  Sex: Female

DRUGS (3)
  1. RIZATRIPTAN [Suspect]
     Active Substance: RIZATRIPTAN
     Indication: Migraine with aura
     Route: 065
  2. TEMAZEPAM [Suspect]
     Active Substance: TEMAZEPAM
     Indication: Insomnia
     Route: 065
  3. TENECTEPLASE [Concomitant]
     Active Substance: TENECTEPLASE
     Indication: Transient ischaemic attack
     Route: 065

REACTIONS (1)
  - Transient global amnesia [Unknown]
